FAERS Safety Report 14799790 (Version 4)
Quarter: 2018Q3

REPORT INFORMATION
  Report Type: Spontaneous
  Country: FR (occurrence: FR)
  Receive Date: 20180424
  Receipt Date: 20180727
  Transmission Date: 20181010
  Serious: Yes (Other)
  Sender: FDA-Public Use
  Company Number: FR-JNJFOC-20180403317

PATIENT
  Age: 20 Year
  Sex: Female

DRUGS (4)
  1. RISPERIDONE. [Suspect]
     Active Substance: RISPERIDONE
     Indication: NEURODEVELOPMENTAL DISORDER
     Route: 065
  2. ARIPIPRAZOLE. [Interacting]
     Active Substance: ARIPIPRAZOLE
     Indication: AUTISM SPECTRUM DISORDER
     Route: 065
  3. ARIPIPRAZOLE. [Interacting]
     Active Substance: ARIPIPRAZOLE
     Indication: NEURODEVELOPMENTAL DISORDER
     Route: 065
  4. RISPERIDONE. [Suspect]
     Active Substance: RISPERIDONE
     Indication: AUTISM SPECTRUM DISORDER
     Route: 065

REACTIONS (9)
  - Intentional self-injury [Unknown]
  - Paradoxical drug reaction [Unknown]
  - Scar [Unknown]
  - Drug interaction [Unknown]
  - Aggression [Unknown]
  - Off label use [Unknown]
  - Anxiety [Unknown]
  - Product use in unapproved indication [Unknown]
  - Agitation [Unknown]
